FAERS Safety Report 8964364 (Version 1)
Quarter: 2012Q4

REPORT INFORMATION
  Report Type: 
  Country: US (occurrence: US)
  Receive Date: 20121214
  Receipt Date: 20121214
  Transmission Date: 20130627
  Serious: No
  Sender: FDA-Public Use
  Company Number: US-GLAXOSMITHKLINE-A0976597A

PATIENT
  Age: 77 Year
  Sex: Male

DRUGS (14)
  1. AVODART [Suspect]
     Indication: BENIGN PROSTATIC HYPERPLASIA
     Dosage: 1CAP Per day
     Route: 048
     Dates: start: 201104
  2. JALYN [Suspect]
     Indication: BENIGN PROSTATIC HYPERPLASIA
     Dosage: 1CAP Per day
     Route: 048
     Dates: start: 20120505, end: 20120507
  3. SINGULAIR [Concomitant]
  4. LORATADINE [Concomitant]
  5. DIAZEPAM [Concomitant]
  6. CRESTOR [Concomitant]
  7. ZETIA [Concomitant]
  8. VERAPAMIL [Concomitant]
  9. TERAZOSIN [Concomitant]
  10. FLONASE [Concomitant]
  11. ADVAIR DISKUS [Concomitant]
  12. ADVIL [Concomitant]
  13. BABY ASPIRIN [Concomitant]
  14. PRILOSEC [Concomitant]

REACTIONS (5)
  - Dizziness [Recovering/Resolving]
  - Dizziness [Unknown]
  - Headache [Unknown]
  - Muscle tightness [Unknown]
  - Gastric disorder [Unknown]
